FAERS Safety Report 14181362 (Version 2)
Quarter: 2017Q4

REPORT INFORMATION
  Report Type: Spontaneous
  Country: IT (occurrence: IT)
  Receive Date: 20171113
  Receipt Date: 20171123
  Transmission Date: 20180321
  Serious: Yes (Hospitalization)
  Sender: FDA-Public Use
  Company Number: IT-SUN PHARMACEUTICAL INDUSTRIES LTD-2017RR-153926

PATIENT
  Age: 22 Year
  Sex: Female

DRUGS (3)
  1. CIPROXIN 500 MG [Suspect]
     Active Substance: CIPROFLOXACIN
     Indication: INTENTIONAL OVERDOSE
     Dosage: 4 DF TOTAL
     Route: 048
     Dates: start: 20170924, end: 20170924
  2. ALPRAZOLAM. [Suspect]
     Active Substance: ALPRAZOLAM
     Indication: INTENTIONAL OVERDOSE
     Dosage: 7.5 MG TOTAL
     Route: 048
     Dates: start: 20170924, end: 20170924
  3. ASPIRINA 400 MG COMPRESSE EFFERVESCENTI CON VITAMINA C [Suspect]
     Active Substance: ACETAMINOPHEN\ASCORBIC ACID
     Indication: INTENTIONAL OVERDOSE
     Dosage: 4 DF TOTAL
     Route: 048
     Dates: start: 20170924, end: 20170924

REACTIONS (3)
  - Drug abuse [Recovered/Resolved]
  - Bradyphrenia [Recovered/Resolved]
  - Hypokinesia [Recovered/Resolved]

NARRATIVE: CASE EVENT DATE: 20170924
